FAERS Safety Report 6293220-5 (Version None)
Quarter: 2009Q3

REPORT INFORMATION
  Report Type: 
  Country: None (occurrence: None)
  Receive Date: 20090731
  Receipt Date: 20090723
  Transmission Date: 20100115
  Serious: Yes (Hospitalization)
  Sender: FDA-Public Use
  Company Number: CA-ABBOTT-09P-028-0586909-00

PATIENT
  Sex: Male
  Weight: 75.818 kg

DRUGS (5)
  1. LUPRON DEPOT [Suspect]
     Indication: PROSTATE CANCER
     Dosage: 22.5 MG -3 MONTH DEPOT
     Dates: start: 20090424, end: 20090424
  2. ASAPHEN [Concomitant]
     Indication: DRUG USE FOR UNKNOWN INDICATION
  3. NOVO ATENOLOL [Concomitant]
     Indication: DRUG USE FOR UNKNOWN INDICATION
  4. SENOKOT [Concomitant]
     Indication: CONSTIPATION
     Dosage: 1-2 TABS
  5. GOUT MEDICATION [Concomitant]
     Indication: GOUT

REACTIONS (3)
  - CONSTIPATION [None]
  - HYPOGLYCAEMIA [None]
  - MALAISE [None]
